FAERS Safety Report 10019569 (Version 1)
Quarter: 2014Q1

REPORT INFORMATION
  Report Type: Spontaneous
  Country: US (occurrence: US)
  Receive Date: 20140318
  Receipt Date: 20140318
  Transmission Date: 20141002
  Serious: Yes (Hospitalization, Other)
  Sender: FDA-Public Use
  Company Number: US-ELI_LILLY_AND_COMPANY-US201403002457

PATIENT
  Age: 24 Year
  Sex: Male

DRUGS (3)
  1. HUMALOG LISPRO [Suspect]
     Indication: TYPE 1 DIABETES MELLITUS
     Dosage: UNK, QID
     Route: 065
     Dates: start: 2010
  2. HUMULIN R [Concomitant]
     Indication: TYPE 1 DIABETES MELLITUS
  3. HYDROCORTISONE [Concomitant]

REACTIONS (2)
  - Diabetic ketoacidosis [Unknown]
  - Diabetic neuropathy [Not Recovered/Not Resolved]
